FAERS Safety Report 4401311-6 (Version None)
Quarter: 2004Q3

REPORT INFORMATION
  Report Type: 
  Country: None (occurrence: None)
  Receive Date: 20040907
  Receipt Date: 20040301
  Transmission Date: 20050211
  Serious: No
  Sender: FDA-Public Use
  Company Number: US-BRISTOL-MYERS SQUIBB COMPANY-12520987

PATIENT
  Age: 78 Year
  Sex: Male
  Weight: 87 kg

DRUGS (5)
  1. COUMADIN [Suspect]
     Indication: ATRIAL FIBRILLATION
     Dosage: ALTERNATING SCHEDULE 5MG X 4 D/WK + 2.5MG X 3 D/WK; REDUCED TO 5MG X 3 D/WK + 2.5MG X 4 D/WK
     Route: 048
  2. BETAPACE AF [Concomitant]
  3. FLOMAX [Concomitant]
  4. MULTI-VITAMIN [Concomitant]
  5. POTASSIUM [Concomitant]

REACTIONS (2)
  - INTERNATIONAL NORMALISED RATIO ABNORMAL [None]
  - RASH PRURITIC [None]
